FAERS Safety Report 8160901-8 (Version None)
Quarter: 2012Q1

REPORT INFORMATION
  Report Type: 
  Country: None (occurrence: None)
  Receive Date: 20120223
  Receipt Date: 20120222
  Transmission Date: 20120608
  Serious: Yes (Other)
  Sender: FDA-Public Use
  Company Number: PHFR2012IE001049

PATIENT
  Sex: Male

DRUGS (10)
  1. KWELLS [Concomitant]
     Indication: ADVERSE DRUG REACTION
     Route: 048
  2. FERROUS SULFATE TAB [Concomitant]
     Indication: MINERAL SUPPLEMENTATION
     Route: 048
  3. GLUCOPHAGE [Concomitant]
     Indication: TYPE 2 DIABETES MELLITUS
     Dosage: 1000 MG, DAILY
     Route: 048
  4. ATORVASTATIN [Concomitant]
     Indication: BLOOD CHOLESTEROL INCREASED
     Dosage: 20 MG, DAILY
     Route: 048
  5. RISPERIDONE [Concomitant]
     Indication: PRODUCT USED FOR UNKNOWN INDICATION
     Dosage: 3 MG, DAILY
     Route: 048
  6. SERTRALINE HYDROCHLORIDE [Concomitant]
     Dosage: 100 MG, DAILY
     Route: 048
     Dates: start: 20111220
  7. CLOZARIL [Suspect]
     Indication: PSYCHOTIC DISORDER
     Dosage: 400 MG, DAILY
     Route: 048
     Dates: start: 20051004
  8. OMEGA-3 FATTY ACIDS [Concomitant]
     Indication: PRODUCT USED FOR UNKNOWN INDICATION
     Route: 048
  9. LAMOTRIGINE [Concomitant]
     Dosage: 275 MG, DAILY
     Route: 048
  10. PROPRANOLOL [Concomitant]
     Indication: TACHYCARDIA
     Dosage: 20 MG, DAILY
     Route: 048
     Dates: start: 20051001

REACTIONS (6)
  - NASAL CONGESTION [None]
  - VIRAL INFECTION [None]
  - RHINORRHOEA [None]
  - OROPHARYNGEAL PAIN [None]
  - NASOPHARYNGITIS [None]
  - INFLUENZA LIKE ILLNESS [None]
